FAERS Safety Report 6293732-4 (Version None)
Quarter: 2009Q3

REPORT INFORMATION
  Report Type: 
  Country: None (occurrence: None)
  Receive Date: 20090729
  Receipt Date: 20090722
  Transmission Date: 20100115
  Serious: Yes (Life-Threatening, Hospitalization)
  Sender: FDA-Public Use
  Company Number: SPV1-2009-01057

PATIENT
  Age: 58 Year
  Sex: Male

DRUGS (17)
  1. FOSRENOL [Suspect]
     Indication: HYPERPHOSPHATAEMIA
     Dosage: 750 MG, ORAL
     Route: 048
     Dates: start: 20090418, end: 20090520
  2. BUFFERIN [Suspect]
     Dosage: 81 MG, ORAL
     Route: 048
  3. LANSOPRAZOLE [Suspect]
     Dates: start: 20090520, end: 20090527
  4. ALLOPURINOL [Suspect]
     Dosage: ORAL
     Route: 048
     Dates: end: 20090528
  5. DIOVAN [Concomitant]
  6. ZANTAC /00550802/ (RANITIDINE HYDROCHLORIDE) [Concomitant]
  7. PANALDINE (TICLOPIDINE HYDROCHLORIDE) [Concomitant]
  8. MUCOSTA (REBAMIPIDE) [Concomitant]
  9. CALTAN (CALCIUM CARBONATE) [Concomitant]
  10. BASEN (VOGLIBOSE) [Concomitant]
  11. SIGMART (NICORANDIL) [Concomitant]
  12. METHYCOBAL /00056201/ (CYANOCOBALAMIN) [Concomitant]
  13. PROCYLIN (BERAPROST SODIUM) [Concomitant]
  14. FERRUM /00023502/ (FERROUS GLUCONATE) [Concomitant]
  15. ALLOPURINOL [Concomitant]
  16. NORVASC [Concomitant]
  17. CARVEDILOL [Concomitant]

REACTIONS (3)
  - ANAEMIA [None]
  - DISEASE PROGRESSION [None]
  - PANCYTOPENIA [None]
